FAERS Safety Report 14517664 (Version 3)
Quarter: 2018Q2

REPORT INFORMATION
  Report Type: Spontaneous
  Country: US (occurrence: US)
  Receive Date: 20180212
  Receipt Date: 20180614
  Transmission Date: 20180711
  Serious: No
  Sender: FDA-Public Use
  Company Number: US-PFIZER INC-2017536686

PATIENT
  Age: 63 Year
  Sex: Female
  Weight: 79.82 kg

DRUGS (5)
  1. XELJANZ [Suspect]
     Active Substance: TOFACITINIB CITRATE
     Indication: CROHN^S DISEASE
     Dosage: 5 MG, 2X/DAY
     Route: 048
     Dates: end: 201608
  2. XELJANZ [Suspect]
     Active Substance: TOFACITINIB CITRATE
     Indication: INFLAMMATION
     Dosage: 5 MG, 4X/DAY
     Route: 048
  3. METHOTREXATE. [Concomitant]
     Active Substance: METHOTREXATE
     Indication: ARTHRITIS
  4. XELJANZ [Suspect]
     Active Substance: TOFACITINIB CITRATE
     Dosage: 10 MG, 2X/DAY (5MG (2) TWO TABLETS EVERY 12 HOURS)
     Route: 048
  5. METHOTREXATE. [Concomitant]
     Active Substance: METHOTREXATE
     Indication: INFLAMMATION
     Dosage: UNK

REACTIONS (2)
  - Prescribed overdose [Unknown]
  - Drug ineffective for unapproved indication [Unknown]
